FAERS Safety Report 19702229 (Version 1)
Quarter: 2021Q3

REPORT INFORMATION
  Report Type: Spontaneous
  Country: US (occurrence: US)
  Receive Date: 20210814
  Receipt Date: 20210814
  Transmission Date: 20211014
  Serious: No
  Sender: FDA-Public Use
  Company Number: US-JNJFOC-20210803791

PATIENT
  Age: 58 Year
  Sex: Male

DRUGS (1)
  1. DARZALEX [Suspect]
     Active Substance: DARATUMUMAB
     Indication: PLASMA CELL MYELOMA
     Dosage: SEVEN 400MG VIALS AND ONE 100MG VIAL.?EXPIRY DATE: 30/JUN/2022
     Route: 042
     Dates: start: 202005

REACTIONS (1)
  - Suspected COVID-19 [Unknown]
